FAERS Safety Report 11107884 (Version 3)
Quarter: 2015Q2

REPORT INFORMATION
  Report Type: Spontaneous
  Country: AR (occurrence: AR)
  Receive Date: 20150512
  Receipt Date: 20150515
  Transmission Date: 20150821
  Serious: Yes (Death)
  Sender: FDA-Public Use
  Company Number: AR-ABBVIE-15P-007-1389722-00

PATIENT
  Sex: Male

DRUGS (1)
  1. SEVORANE [Suspect]
     Active Substance: SEVOFLURANE
     Indication: PRODUCT USED FOR UNKNOWN INDICATION
     Route: 055
     Dates: start: 20150506

REACTIONS (2)
  - Toxicity to various agents [Fatal]
  - Liver injury [Fatal]

NARRATIVE: CASE EVENT DATE: 20150506
